FAERS Safety Report 11690112 (Version 1)
Quarter: 2015Q4

REPORT INFORMATION
  Report Type: Spontaneous
  Country: US (occurrence: US)
  Receive Date: 20151102
  Receipt Date: 20151102
  Transmission Date: 20160304
  Serious: No
  Sender: FDA-Public Use
  Company Number: US-WATSON-2015-00379

PATIENT
  Age: 50 Year
  Sex: Male

DRUGS (2)
  1. RAPAFLO [Suspect]
     Active Substance: SILODOSIN
     Indication: PROSTATIC DISORDER
     Dosage: 1 DF, BID
     Route: 048
     Dates: start: 201412
  2. RAPAFLO [Suspect]
     Active Substance: SILODOSIN
     Indication: HYPERTONIC BLADDER

REACTIONS (2)
  - Retrograde ejaculation [Not Recovered/Not Resolved]
  - Rash [Not Recovered/Not Resolved]
